FAERS Safety Report 5318309-6 (Version None)
Quarter: 2007Q2

REPORT INFORMATION
  Report Type: 
  Country: None (occurrence: None)
  Receive Date: 20070507
  Receipt Date: 20070502
  Transmission Date: 20071010
  Serious: Yes (Other)
  Sender: FDA-Public Use
  Company Number: AE-SANOFI-SYNTHELABO-A01200704595

PATIENT
  Sex: Female

DRUGS (5)
  1. NEO-MERCAZOLE TAB [Concomitant]
     Dosage: 5 MG
     Route: 048
  2. LASIX [Concomitant]
     Dosage: 125 MG
     Route: 048
  3. FORTECORTIN [Concomitant]
     Indication: ANTIEMETIC SUPPORTIVE CARE
     Dosage: 8 MG
     Route: 048
     Dates: start: 20070418
  4. KYTRIL [Concomitant]
     Indication: ANTIEMETIC SUPPORTIVE CARE
     Dosage: 2 MG
     Route: 048
     Dates: start: 20070418
  5. ELOXATIN [Suspect]
     Indication: COLORECTAL CANCER METASTATIC
     Dosage: 200 MG
     Route: 042
     Dates: start: 20070418, end: 20070418

REACTIONS (4)
  - FAECAL INCONTINENCE [None]
  - LARYNGOSPASM [None]
  - NAUSEA [None]
  - VOMITING [None]
